FAERS Safety Report 20475481 (Version 1)
Quarter: 2022Q1

REPORT INFORMATION
  Report Type: Spontaneous
  Country: US (occurrence: US)
  Receive Date: 20220215
  Receipt Date: 20220215
  Transmission Date: 20220423
  Serious: Yes (Death)
  Sender: FDA-Public Use
  Company Number: US-PERRIGO-22US002378

PATIENT
  Age: 63 Year
  Sex: Female

DRUGS (9)
  1. DOXYLAMINE SUCCINATE [Suspect]
     Active Substance: DOXYLAMINE SUCCINATE
     Indication: Suspected suicide
     Dosage: UNKNOWN, UNKNOWN
     Route: 048
  2. METOPROLOL [Suspect]
     Active Substance: METOPROLOL
     Indication: Suspected suicide
     Dosage: UNKNOWN, UNKNOWN
     Route: 048
  3. HYDRALAZINE [Suspect]
     Active Substance: HYDRALAZINE HYDROCHLORIDE
     Indication: Suspected suicide
     Dosage: UNKNOWN, UNKNOWN
     Route: 048
  4. TERAZOSIN [Suspect]
     Active Substance: TERAZOSIN HYDROCHLORIDE
     Indication: Suspected suicide
     Dosage: UNKNOWN, UNKNOWN
     Route: 048
  5. VENLAFAXINE [Suspect]
     Active Substance: VENLAFAXINE HYDROCHLORIDE
     Indication: Suspected suicide
     Dosage: UNKNOWN, UNKNOWN
     Route: 048
  6. ACETAMINOPHEN\HYDROCODONE [Suspect]
     Active Substance: ACETAMINOPHEN\HYDROCODONE
     Indication: Suspected suicide
     Dosage: UNKNOWN, UNKNOWN
     Route: 048
  7. FLUOXETINE [Suspect]
     Active Substance: FLUOXETINE HYDROCHLORIDE
     Indication: Suspected suicide
     Dosage: UNKNOWN, UNKNOWN
     Route: 048
  8. MECLIZINE [Suspect]
     Active Substance: MECLIZINE HYDROCHLORIDE
     Indication: Suspected suicide
     Dosage: UNKNOWN, UNKNOWN
     Route: 048
  9. MELOXICAM [Suspect]
     Active Substance: MELOXICAM
     Indication: Suspected suicide
     Dosage: UNKNOWN, UNKNOWN
     Route: 048

REACTIONS (1)
  - Exposure to toxic agent [Fatal]

NARRATIVE: CASE EVENT DATE: 20200101
